FAERS Safety Report 4836431-5 (Version None)
Quarter: 2005Q4

REPORT INFORMATION
  Report Type: 
  Country: None (occurrence: None)
  Receive Date: 20051123
  Receipt Date: 19921001
  Transmission Date: 20060501
  Serious: Yes (Other)
  Sender: FDA-Public Use
  Company Number: PHBS1992BR03443

PATIENT
  Age: 25 Year
  Sex: Male

DRUGS (1)
  1. LEPONEX [Suspect]
     Dates: start: 19911025

REACTIONS (3)
  - EOSINOPHILIA [None]
  - LYMPHOCYTE COUNT DECREASED [None]
  - MONOCYTE COUNT INCREASED [None]
